FAERS Safety Report 24215728 (Version 3)
Quarter: 2024Q3

REPORT INFORMATION
  Report Type: Spontaneous
  Country: BR (occurrence: BR)
  Receive Date: 20240816
  Receipt Date: 20240824
  Transmission Date: 20241017
  Serious: No
  Sender: CELLTRION
  Company Number: BR-CELLTRION INC.-2024BR019435

PATIENT

DRUGS (12)
  1. INFLIXIMAB [Suspect]
     Active Substance: INFLIXIMAB
     Indication: Crohn^s disease
     Dosage: 5 AMPOULES EVERY 6 MONTHS
     Route: 042
     Dates: start: 202208
  2. INFLIXIMAB [Suspect]
     Active Substance: INFLIXIMAB
     Dosage: 5 AMPOULES EVERY 6 MONTHS
     Route: 042
     Dates: start: 20220809
  3. INFLIXIMAB [Suspect]
     Active Substance: INFLIXIMAB
     Dosage: 5 AMPOULES EVERY 6 MONTHS, (LAST INFUSION WAS MADE BETWEEN 10/JUL AND 15/JUL/2024)
     Route: 042
  4. INFLIXIMAB [Suspect]
     Active Substance: INFLIXIMAB
     Dosage: 6 AMPOULES EVERY 6 MONTHS
     Route: 042
     Dates: start: 20240715
  5. MESALAMINE [Concomitant]
     Active Substance: MESALAMINE
     Indication: Product used for unknown indication
     Route: 065
  6. AZATHIOPRINE [Concomitant]
     Active Substance: AZATHIOPRINE
     Indication: Crohn^s disease
     Dosage: 3 PILLS AT DAY (START DATE: SINCE 2019)
     Route: 048
  7. DEXILANT [Concomitant]
     Active Substance: DEXLANSOPRAZOLE
     Indication: Abdominal discomfort
     Dosage: 1 PILL AT DAY (START DATE: SINCE 2019)
     Route: 048
  8. DOMPERIDONE [Concomitant]
     Active Substance: DOMPERIDONE
     Indication: Abdominal discomfort
     Dosage: 3 PILLS AT DAY (SINCE 2019)
     Route: 048
  9. SIMVASTATIN [Concomitant]
     Active Substance: SIMVASTATIN
     Indication: Blood cholesterol
     Dosage: 1 PILL AT DAY (START DATE:UNK)
     Route: 048
  10. LITHIUM CARBONATE [Concomitant]
     Active Substance: LITHIUM CARBONATE
     Indication: Bipolar disorder
     Dosage: 2 PILLS AT DAY (START DATE: SINCE 2020 OR 2021)
     Route: 048
  11. QUETIAPINE [Concomitant]
     Active Substance: QUETIAPINE
     Indication: Bipolar disorder
     Dosage: 2 PILLS AT DAY (START DATE: SINCE 2020 OR 2021)
     Route: 048
  12. METFORMIN [Concomitant]
     Active Substance: METFORMIN HYDROCHLORIDE
     Indication: Diabetes mellitus
     Dosage: 2 PILLS AT DAY (START DATE: SINCE 2020 OR 2021)
     Route: 048

REACTIONS (3)
  - Infection [Unknown]
  - Therapy interrupted [Unknown]
  - Intentional product use issue [Unknown]
